FAERS Safety Report 7899021-6 (Version None)
Quarter: 2011Q4

REPORT INFORMATION
  Report Type: 
  Country: None (occurrence: None)
  Receive Date: 20111107
  Receipt Date: 20111101
  Transmission Date: 20120403
  Serious: Yes (Death, Hospitalization, Other)
  Sender: FDA-Public Use
  Company Number: BR-ASTRAZENECA-2011SE63124

PATIENT
  Age: 66 Year
  Sex: Male

DRUGS (2)
  1. MEROPENEM [Suspect]
     Indication: LUNG INFECTION
     Route: 042
  2. PROPOFOL [Suspect]
     Indication: SEDATION
     Route: 042
     Dates: start: 20110901

REACTIONS (10)
  - GENERALISED OEDEMA [None]
  - HYPERSENSITIVITY [None]
  - BLOOD POTASSIUM DECREASED [None]
  - DRY EYE [None]
  - RESPIRATORY FAILURE [None]
  - OXYGEN SATURATION DECREASED [None]
  - LUNG INFECTION [None]
  - PULMONARY OEDEMA [None]
  - PLEURAL EFFUSION [None]
  - RASH ERYTHEMATOUS [None]
